FAERS Safety Report 17305044 (Version 2)
Quarter: 2020Q1

REPORT INFORMATION
  Report Type: Report from Study
  Country: IT (occurrence: IT)
  Receive Date: 20200123
  Receipt Date: 20200207
  Transmission Date: 20200409
  Serious: Yes (Congenital Anomaly, Other)
  Sender: FDA-Public Use
  Company Number: IT-SA-2020SA017117

PATIENT
  Sex: Female

DRUGS (2)
  1. LEFLUNOMIDE. [Suspect]
     Active Substance: LEFLUNOMIDE
     Route: 064
  2. PREDNISONE. [Suspect]
     Active Substance: PREDNISONE
     Route: 064

REACTIONS (3)
  - Aplasia cutis congenita [Unknown]
  - Premature baby [Unknown]
  - Foetal exposure during pregnancy [Unknown]
